FAERS Safety Report 20191844 (Version 2)
Quarter: 2021Q4

REPORT INFORMATION
  Report Type: Spontaneous
  Country: AT (occurrence: AT)
  Receive Date: 20211216
  Receipt Date: 20211229
  Transmission Date: 20220303
  Serious: Yes (Death, Life-Threatening, Hospitalization)
  Sender: FDA-Public Use
  Company Number: AT-TEVA-2021-AT-1986848

PATIENT
  Sex: Male

DRUGS (13)
  1. GABAPENTIN [Suspect]
     Active Substance: GABAPENTIN
     Indication: Sedative therapy
     Route: 064
  2. QUETIAPINE [Suspect]
     Active Substance: QUETIAPINE
     Indication: Product used for unknown indication
     Route: 064
  3. TACROLIMUS [Suspect]
     Active Substance: TACROLIMUS
     Indication: Immunosuppressant drug therapy
     Dosage: MONOTHERAPY
     Route: 064
  4. ALEMTUZUMAB [Suspect]
     Active Substance: ALEMTUZUMAB
     Indication: Immunosuppressant drug therapy
     Dosage: INDUCTION THERAPY
     Route: 064
  5. MAGNESIUM SULFATE [Suspect]
     Active Substance: MAGNESIUM SULFATE
     Indication: Nervous system disorder prophylaxis
     Route: 064
  6. LORAZEPAM [Suspect]
     Active Substance: LORAZEPAM
     Indication: Sedative therapy
     Route: 064
  7. HYDROCORTISONE [Suspect]
     Active Substance: HYDROCORTISONE
     Indication: Pulmonary hypertension
     Route: 065
  8. NITRIC OXIDE [Suspect]
     Active Substance: NITRIC OXIDE
     Indication: Pulmonary hypertension
     Route: 055
  9. ILOPROST [Suspect]
     Active Substance: ILOPROST
     Indication: Pulmonary hypertension
     Route: 055
  10. SILDENAFIL [Suspect]
     Active Substance: SILDENAFIL
     Indication: Pulmonary hypertension
     Route: 055
  11. NOREPINEPHRINE\NOREPINEPHRINE BITARTRATE [Suspect]
     Active Substance: NOREPINEPHRINE\NOREPINEPHRINE BITARTRATE
     Indication: Hypotension
     Dosage: FOR 2 DAYS
     Route: 065
  12. ADRENALIN [Suspect]
     Active Substance: EPINEPHRINE
     Indication: Hypotension
     Dosage: FOR 2 DAYS
     Route: 065
  13. VASOPRESSIN [Suspect]
     Active Substance: VASOPRESSIN
     Indication: Hypotension
     Dosage: FOR 2 DAYS
     Route: 065

REACTIONS (3)
  - Drug ineffective [Fatal]
  - Drug withdrawal syndrome neonatal [Unknown]
  - Foetal exposure during pregnancy [Unknown]
